FAERS Safety Report 9736474 (Version 2)
Quarter: 2013Q4

REPORT INFORMATION
  Report Type: Spontaneous
  Country: US (occurrence: US)
  Receive Date: 20131206
  Receipt Date: 20131230
  Transmission Date: 20140711
  Serious: No
  Sender: FDA-Public Use
  Company Number: US-PFIZER INC-2013347551

PATIENT
  Age: 34 Year
  Sex: Female

DRUGS (4)
  1. XELJANZ [Suspect]
     Indication: RHEUMATOID ARTHRITIS
     Dosage: 5MG (1 PILL) TWICE DAILY
     Route: 048
  2. CELLCEPT [Concomitant]
     Dosage: UNK
  3. VICODIN [Concomitant]
     Dosage: UNK
  4. OSCAL 500/200 D-3 [Concomitant]
     Dosage: UNK

REACTIONS (3)
  - Oedema [Unknown]
  - Arthropathy [Unknown]
  - Joint crepitation [Unknown]
